FAERS Safety Report 5758976-6 (Version None)
Quarter: 2008Q2

REPORT INFORMATION
  Report Type: 
  Country: None (occurrence: None)
  Receive Date: 20080602
  Receipt Date: 20080519
  Transmission Date: 20081010
  Serious: Yes (Disabling)
  Sender: FDA-Public Use
  Company Number: 100#03#2008-02741

PATIENT
  Age: 79 Year
  Sex: Male

DRUGS (4)
  1. CIPROFLOXACIN [Suspect]
     Indication: URINARY TRACT INFECTION PSEUDOMONAL
     Dates: start: 20080415
  2. ACETYLSALICYLIC ACID SRT [Concomitant]
  3. FINASTERIDE [Concomitant]
  4. OXYBUTYNIN CHLORIDE [Concomitant]

REACTIONS (1)
  - POLYARTHRITIS [None]
